FAERS Safety Report 8122153-4 (Version None)
Quarter: 2012Q1

REPORT INFORMATION
  Report Type: 
  Country: None (occurrence: None)
  Receive Date: 20120208
  Receipt Date: 20120131
  Transmission Date: 20120608
  Serious: Yes (Life-Threatening, Hospitalization, Disabling)
  Sender: FDA-Public Use
  Company Number: US-JNJFOC-20120202961

PATIENT
  Age: 34 Year
  Sex: Female

DRUGS (3)
  1. OXYCODONE/ACETAMINOPHEN [Suspect]
     Indication: SUICIDE ATTEMPT
     Route: 065
  2. QUETIAPINE FUMARATE [Suspect]
     Indication: SUICIDE ATTEMPT
     Route: 065
  3. CHLORAL HYDRATE [Suspect]
     Indication: SUICIDE ATTEMPT
     Route: 065

REACTIONS (9)
  - MYELOPATHY [None]
  - MULTIPLE DRUG OVERDOSE INTENTIONAL [None]
  - ELECTROCARDIOGRAM QT PROLONGED [None]
  - MULTI-ORGAN FAILURE [None]
  - QUADRIPARESIS [None]
  - AUTONOMIC NERVOUS SYSTEM IMBALANCE [None]
  - NECROSIS [None]
  - ANAEMIA [None]
  - LEUKOPENIA [None]
